FAERS Safety Report 4451951-3 (Version None)
Quarter: 2004Q3

REPORT INFORMATION
  Report Type: 
  Country: None (occurrence: None)
  Receive Date: 20040915
  Receipt Date: 20040915
  Transmission Date: 20050211
  Serious: Yes (Life-Threatening, Hospitalization)
  Sender: FDA-Public Use
  Company Number: None

PATIENT
  Age: 71 Year
  Sex: Male
  Weight: 71.4 kg

DRUGS (2)
  1. LISINOPRIL [Suspect]
  2. METOPROLOL TAB [Suspect]
     Dosage: 12.5 MG PO
     Route: 048
     Dates: start: 20040608, end: 20040608

REACTIONS (2)
  - ORTHOSTATIC HYPOTENSION [None]
  - SYNCOPE [None]
